APPROVED DRUG PRODUCT: DILATRATE-SR
Active Ingredient: ISOSORBIDE DINITRATE
Strength: 40MG
Dosage Form/Route: CAPSULE, EXTENDED RELEASE;ORAL
Application: N019790 | Product #001
Applicant: ENDO OPERATIONS LTD
Approved: Sep 2, 1988 | RLD: Yes | RS: No | Type: DISCN